FAERS Safety Report 6255501-0 (Version None)
Quarter: 2009Q2

REPORT INFORMATION
  Report Type: 
  Country: None (occurrence: None)
  Receive Date: 20090630
  Receipt Date: 20090615
  Transmission Date: 20091009
  Serious: Yes (Other)
  Sender: FDA-Public Use
  Company Number: DE-GDP-09405885

PATIENT
  Sex: Female
  Weight: 2.3 kg

DRUGS (1)
  1. METROCREAM [Suspect]
     Dosage: (1 DF BID)
     Dates: start: 20050701, end: 20090503

REACTIONS (6)
  - BREECH PRESENTATION [None]
  - CAESAREAN SECTION [None]
  - FOETAL GROWTH RETARDATION [None]
  - MATERNAL DRUGS AFFECTING FOETUS [None]
  - OLIGOHYDRAMNIOS [None]
  - SMALL FOR DATES BABY [None]
